FAERS Safety Report 7800060-1 (Version None)
Quarter: 2011Q4

REPORT INFORMATION
  Report Type: 
  Country: None (occurrence: None)
  Receive Date: 20111004
  Receipt Date: 20110311
  Transmission Date: 20120403
  Serious: Yes (Other)
  Sender: FDA-Public Use
  Company Number: WAES 1103USA02011

PATIENT
  Age: 60 Year
  Sex: Female

DRUGS (20)
  1. MEROPENEM [Concomitant]
  2. CISPLATIN [Suspect]
     Indication: SMALL CELL LUNG CANCER STAGE UNSPECIFIED
     Dosage: 100 MG/DAILY  70 MG/DAILY
     Route: 042
     Dates: start: 20101124, end: 20101124
  3. CISPLATIN [Suspect]
     Indication: SMALL CELL LUNG CANCER STAGE UNSPECIFIED
     Dosage: 100 MG/DAILY  70 MG/DAILY
     Route: 042
     Dates: start: 20101220, end: 20101220
  4. CISPLATIN [Suspect]
     Indication: SMALL CELL LUNG CANCER STAGE UNSPECIFIED
     Dosage: 100 MG/DAILY  70 MG/DAILY
     Route: 042
     Dates: start: 20110201, end: 20110201
  5. CISPLATIN [Suspect]
     Indication: SMALL CELL LUNG CANCER STAGE UNSPECIFIED
     Dosage: 100 MG/DAILY  70 MG/DAILY
     Route: 042
     Dates: start: 20110222, end: 20110222
  6. ETOPOSIDE [Suspect]
     Indication: SMALL CELL LUNG CANCER STAGE UNSPECIFIED
     Dosage: 130 MG/DAILY  100 MG/DAILY  70 MG/DAILY  59 MG/DAILY
     Route: 042
     Dates: start: 20110222, end: 20110224
  7. ETOPOSIDE [Suspect]
     Indication: SMALL CELL LUNG CANCER STAGE UNSPECIFIED
     Dosage: 130 MG/DAILY  100 MG/DAILY  70 MG/DAILY  59 MG/DAILY
     Route: 042
     Dates: start: 20101220, end: 20101222
  8. ETOPOSIDE [Suspect]
     Indication: SMALL CELL LUNG CANCER STAGE UNSPECIFIED
     Dosage: 130 MG/DAILY  100 MG/DAILY  70 MG/DAILY  59 MG/DAILY
     Route: 042
     Dates: start: 20101124, end: 20101126
  9. ETOPOSIDE [Suspect]
     Indication: SMALL CELL LUNG CANCER STAGE UNSPECIFIED
     Dosage: 130 MG/DAILY  100 MG/DAILY  70 MG/DAILY  59 MG/DAILY
     Route: 042
     Dates: start: 20110201, end: 20110203
  10. DEXAMETHASONE SODIUM PHOSPHATE [Concomitant]
  11. EMEND [Suspect]
     Indication: PROPHYLAXIS OF NAUSEA AND VOMITING
     Dosage: 125 MG/DAILY 80 MG/DAILY
     Route: 048
     Dates: start: 20110201, end: 20110201
  12. EMEND [Suspect]
     Indication: PROPHYLAXIS OF NAUSEA AND VOMITING
     Dosage: 125 MG/DAILY 80 MG/DAILY
     Route: 048
     Dates: start: 20101220, end: 20101220
  13. EMEND [Suspect]
     Indication: PROPHYLAXIS OF NAUSEA AND VOMITING
     Dosage: 125 MG/DAILY 80 MG/DAILY
     Route: 048
     Dates: start: 20101124, end: 20101124
  14. EMEND [Suspect]
     Indication: PROPHYLAXIS OF NAUSEA AND VOMITING
     Dosage: 125 MG/DAILY 80 MG/DAILY
     Route: 048
     Dates: start: 20101125, end: 20101126
  15. EMEND [Suspect]
     Indication: PROPHYLAXIS OF NAUSEA AND VOMITING
     Dosage: 125 MG/DAILY 80 MG/DAILY
     Route: 048
     Dates: start: 20110222, end: 20110222
  16. EMEND [Suspect]
     Indication: PROPHYLAXIS OF NAUSEA AND VOMITING
     Dosage: 125 MG/DAILY 80 MG/DAILY
     Route: 048
     Dates: start: 20101221, end: 20101222
  17. EMEND [Suspect]
     Indication: PROPHYLAXIS OF NAUSEA AND VOMITING
     Dosage: 125 MG/DAILY 80 MG/DAILY
     Route: 048
     Dates: start: 20110223, end: 20110224
  18. EMEND [Suspect]
     Indication: PROPHYLAXIS OF NAUSEA AND VOMITING
     Dosage: 125 MG/DAILY 80 MG/DAILY
     Route: 048
     Dates: start: 20110202, end: 20110203
  19. GRANISETRON [Concomitant]
  20. GRAN [Concomitant]

REACTIONS (5)
  - GASTRIC ULCER [None]
  - AGRANULOCYTOSIS [None]
  - NAUSEA [None]
  - DECREASED APPETITE [None]
  - RENAL IMPAIRMENT [None]
